FAERS Safety Report 7042101-8 (Version None)
Quarter: 2010Q4

REPORT INFORMATION
  Report Type: 
  Country: None (occurrence: None)
  Receive Date: 20101013
  Receipt Date: 20100628
  Transmission Date: 20110411
  Serious: No
  Sender: FDA-Public Use
  Company Number: US-ASTRAZENECA-2010SE30109

PATIENT
  Age: 83 Year
  Sex: Female
  Weight: 63.5 kg

DRUGS (13)
  1. SYMBICORT [Suspect]
     Dosage: 80/4.5 TWO PUFFS
     Route: 055
  2. SYMBICORT [Suspect]
     Dosage: 160/4.5 TWO PUFFS
     Route: 055
  3. SPIRIVA [Concomitant]
  4. SINGULAIR [Concomitant]
  5. ASTELIN [Concomitant]
  6. FLONASE [Concomitant]
  7. BONIVA [Concomitant]
  8. LASIX [Concomitant]
  9. PRILOSEC [Concomitant]
  10. POTASSIUM CHLORIDE [Concomitant]
  11. RESTORIL [Concomitant]
  12. CALCIUM [Concomitant]
  13. VITAMINS [Concomitant]

REACTIONS (2)
  - ASTHMA [None]
  - DYSPNOEA [None]
